FAERS Safety Report 9119872 (Version 1)
Quarter: 2013Q1

REPORT INFORMATION
  Report Type: Spontaneous
  Country: US (occurrence: US)
  Receive Date: 20130226
  Receipt Date: 20130226
  Transmission Date: 20140127
  Serious: No
  Sender: FDA-Public Use
  Company Number: US-PFIZER INC-2013064273

PATIENT
  Sex: Male

DRUGS (4)
  1. LORABID [Suspect]
     Dosage: UNK
  2. SILDENAFIL CITRATE [Suspect]
     Dosage: UNK
  3. VENLAFAXINE HYDROCHLORIDE [Suspect]
     Dosage: UNK
  4. GUAIFENESIN AND PHYENYLEPHRINE HYDROCHLORIDE [Suspect]
     Dosage: UNK

REACTIONS (1)
  - Drug hypersensitivity [Unknown]
